FAERS Safety Report 23294241 (Version 1)
Quarter: 2023Q4

REPORT INFORMATION
  Report Type: Spontaneous
  Country: US (occurrence: US)
  Receive Date: 20231213
  Receipt Date: 20231213
  Transmission Date: 20240109
  Serious: No
  Sender: FDA-Public Use
  Company Number: US-VIVUS LLC-2023V1000423

PATIENT
  Sex: Male

DRUGS (3)
  1. PANCREAZE [Suspect]
     Active Substance: PANCRELIPASE AMYLASE\PANCRELIPASE LIPASE\PANCRELIPASE PROTEASE
     Indication: Pancreatic failure
     Dosage: 16,800/56,800/ 98,400 USP 2 CAPSULES WITH EACH MEAL AND 2 CAPSULES WITH SNACKS
     Route: 048
     Dates: start: 202211
  2. PANCREAZE [Suspect]
     Active Substance: PANCRELIPASE AMYLASE\PANCRELIPASE LIPASE\PANCRELIPASE PROTEASE
     Dosage: 16,800/56,800/ 98,400 USP UNITS 3 CAPSULES PER MEAL AND 1 CAPSULE PER SNACK
     Route: 048
     Dates: start: 202304
  3. REGLAN [Concomitant]
     Active Substance: METOCLOPRAMIDE HYDROCHLORIDE
     Indication: Pancreatic failure
     Route: 065

REACTIONS (5)
  - Dyspepsia [Unknown]
  - Feeling abnormal [Unknown]
  - Insomnia [Unknown]
  - Blood glucose abnormal [Unknown]
  - Abdominal distension [Unknown]
